FAERS Safety Report 23546107 (Version 1)
Quarter: 2024Q1

REPORT INFORMATION
  Report Type: Report from Study
  Country: US (occurrence: US)
  Receive Date: 20240220
  Receipt Date: 20240220
  Transmission Date: 20240409
  Serious: Yes (Hospitalization)
  Sender: FDA-Public Use
  Company Number: US-Eisai-EC-2024-159624

PATIENT
  Age: 34 Year
  Sex: Female
  Weight: 59.87 kg

DRUGS (4)
  1. LENVIMA [Suspect]
     Active Substance: LENVATINIB
     Indication: Uterine cancer
     Route: 048
     Dates: start: 20240120, end: 20240204
  2. CIPRO [Concomitant]
     Active Substance: CIPROFLOXACIN HYDROCHLORIDE
  3. FLAGYL [Concomitant]
     Active Substance: METRONIDAZOLE\METRONIDAZOLE HYDROCHLORIDE
  4. INTESTINEX [Concomitant]

REACTIONS (4)
  - Seizure [Recovering/Resolving]
  - Hepatitis [Recovering/Resolving]
  - Gastrointestinal inflammation [Recovering/Resolving]
  - Vomiting [Unknown]

NARRATIVE: CASE EVENT DATE: 20240204
